FAERS Safety Report 4587716-1 (Version None)
Quarter: 2005Q1

REPORT INFORMATION
  Report Type: 
  Country: None (occurrence: None)
  Receive Date: 20050218
  Receipt Date: 20040708
  Transmission Date: 20050727
  Serious: Yes (Hospitalization, Disabling)
  Sender: FDA-Public Use
  Company Number: US-MERCK-0407USA00707

PATIENT
  Age: 40 Year
  Sex: Male
  Weight: 95 kg

DRUGS (9)
  1. DARVOCET-N 100 [Concomitant]
     Route: 048
     Dates: start: 20010418
  2. VIOXX [Suspect]
     Indication: BACK PAIN
     Route: 048
     Dates: start: 20010418, end: 20020802
  3. NEURONTIN [Concomitant]
     Route: 048
  4. FLEXERIL [Concomitant]
     Indication: MYALGIA
     Route: 048
  5. VIAGRA [Concomitant]
     Route: 048
  6. LIPITOR [Concomitant]
     Route: 048
     Dates: start: 20011201
  7. VALTREX [Concomitant]
     Indication: HERPES ZOSTER
     Route: 048
     Dates: start: 20020514, end: 20020729
  8. NIASPAN [Concomitant]
     Route: 048
  9. PAXIL [Concomitant]
     Route: 065

REACTIONS (15)
  - ANXIETY [None]
  - CORONARY ARTERY DISEASE [None]
  - DEPRESSION [None]
  - DIABETES MELLITUS NON-INSULIN-DEPENDENT [None]
  - ERECTILE DYSFUNCTION [None]
  - GASTROOESOPHAGEAL REFLUX DISEASE [None]
  - HYPERTENSION [None]
  - HYPERTRIGLYCERIDAEMIA [None]
  - INTERVERTEBRAL DISC PROTRUSION [None]
  - JOINT EFFUSION [None]
  - MICTURITION DISORDER [None]
  - MYOCARDIAL INFARCTION [None]
  - RENAL FAILURE ACUTE [None]
  - ROTATOR CUFF SYNDROME [None]
  - TENDONITIS [None]
